FAERS Safety Report 9639413 (Version 2)
Quarter: 2013Q4

REPORT INFORMATION
  Report Type: Report from Study
  Country: DE (occurrence: DE)
  Receive Date: 20131022
  Receipt Date: 20131101
  Transmission Date: 20140711
  Serious: Yes (Other)
  Sender: FDA-Public Use
  Company Number: DE-ROCHE-1290416

PATIENT
  Age: 72 Year
  Sex: Male
  Weight: 66 kg

DRUGS (6)
  1. RITUXIMAB [Suspect]
     Indication: CHRONIC LYMPHOCYTIC LEUKAEMIA
     Dosage: DATE OF LAST DOSE PRIOR TO SAE: 30/MAY/2011
     Route: 042
     Dates: start: 20110110, end: 20110530
  2. BENDAMUSTINE [Suspect]
     Indication: CHRONIC LYMPHOCYTIC LEUKAEMIA
     Dosage: DATE OF LAST DOSE PRIOR TO SAE: 31/MAY/2011
     Route: 042
     Dates: start: 20110111, end: 20110531
  3. URBASON (GERMANY) [Concomitant]
     Route: 065
     Dates: start: 20110530, end: 20110530
  4. CLEMASTIN [Concomitant]
     Route: 065
     Dates: start: 20110530, end: 20110530
  5. PARACETAMOL [Concomitant]
     Route: 065
     Dates: start: 20110530, end: 20110530
  6. GRANISETRON [Concomitant]
     Route: 065
     Dates: start: 20110530, end: 20110531

REACTIONS (1)
  - Deep vein thrombosis [Recovered/Resolved]
